FAERS Safety Report 20696748 (Version 2)
Quarter: 2022Q4

REPORT INFORMATION
  Report Type: Report from Study
  Country: PL (occurrence: PL)
  Receive Date: 20220411
  Receipt Date: 20221209
  Transmission Date: 20230113
  Serious: Yes (Death, Other)
  Sender: FDA-Public Use
  Company Number: PL-PFIZER INC-202200533429

PATIENT

DRUGS (7)
  1. CYTARABINE [Suspect]
     Active Substance: CYTARABINE
     Indication: Diffuse large B-cell lymphoma
     Dosage: EVERY 12 H (TOTAL OF FOUR DOSES) 1-2 DAYS IN 21-DAY TREATMENT CYCLES
     Route: 042
  2. OFATUMUMAB [Suspect]
     Active Substance: OFATUMUMAB
     Indication: Diffuse large B-cell lymphoma
     Dosage: ON DAY 1, ADMINISTERED IN 21-DAY TREATMENT CYCLES
     Route: 042
  3. IFOSFAMIDE [Suspect]
     Active Substance: IFOSFAMIDE
     Indication: Diffuse large B-cell lymphoma
     Dosage: ON DAYS 1-5, ADMINISTERED IN 21-DAY TREATMENT CYCLES
     Route: 042
  4. ETOPOSIDE [Suspect]
     Active Substance: ETOPOSIDE
     Indication: Diffuse large B-cell lymphoma
     Dosage: ON DAYS 1-5, ADMINISTERED IN 21-DAY TREATMENT CYCLE
     Route: 042
  5. METHOTREXATE [Concomitant]
     Active Substance: METHOTREXATE
     Indication: Diffuse large B-cell lymphoma
     Dosage: ON DAY 5, ADMINISTERED IN 21-DAY TREATMENT CYCLES
  6. GRANULOCYTE COLONY-STIMULATING FACTOR NOS [Concomitant]
     Active Substance: GRANULOCYTE COLONY-STIMULATING FACTOR NOS
     Dosage: DAILY, ON DAY 6 UNTIL ANC ABOVE 1.0 X10E9/L
     Route: 058
  7. MESNA [Concomitant]
     Active Substance: MESNA
     Dosage: DEPENDING ON LOCAL PRACTICE

REACTIONS (1)
  - Neutropenia [Fatal]
